FAERS Safety Report 6360945-2 (Version None)
Quarter: 2009Q3

REPORT INFORMATION
  Report Type: 
  Country: None (occurrence: None)
  Receive Date: 20090918
  Receipt Date: 20090911
  Transmission Date: 20100115
  Serious: Yes (Hospitalization, Other)
  Sender: FDA-Public Use
  Company Number: US-ASTRAZENECA-2009UW08344

PATIENT
  Age: 47 Year
  Sex: Female
  Weight: 98.6 kg

DRUGS (10)
  1. SEROQUEL [Suspect]
     Indication: BIPOLAR DISORDER
     Route: 048
     Dates: start: 20030301
  2. SEROQUEL [Suspect]
     Indication: SCHIZOPHRENIA
     Route: 048
     Dates: start: 20030301
  3. SEROQUEL [Suspect]
     Indication: DEPRESSION
     Route: 048
     Dates: start: 20030301
  4. SEROQUEL [Suspect]
     Route: 048
     Dates: start: 20040101, end: 20080101
  5. SEROQUEL [Suspect]
     Route: 048
     Dates: start: 20040101, end: 20080101
  6. SEROQUEL [Suspect]
     Route: 048
     Dates: start: 20040101, end: 20080101
  7. ZYPREXA [Concomitant]
     Dates: start: 20060101
  8. ZYPREXA [Concomitant]
     Dosage: 25 MG-200 MG
  9. CLOZARIL [Concomitant]
  10. RISPERDAL [Concomitant]

REACTIONS (10)
  - BLOOD CHOLESTEROL INCREASED [None]
  - BREAST CANCER [None]
  - CARDIAC DISORDER [None]
  - HYPERLIPIDAEMIA [None]
  - LIMB DISCOMFORT [None]
  - PANCREATITIS [None]
  - PHARYNGITIS [None]
  - SHOULDER ARTHROPLASTY [None]
  - SUICIDAL IDEATION [None]
  - TYPE 2 DIABETES MELLITUS [None]
